FAERS Safety Report 9541920 (Version 1)
Quarter: 2013Q3

REPORT INFORMATION
  Report Type: Spontaneous
  Country: FR (occurrence: FR)
  Receive Date: 20130923
  Receipt Date: 20130923
  Transmission Date: 20140515
  Serious: Yes (Hospitalization)
  Sender: FDA-Public Use
  Company Number: PHHY2013FR104538

PATIENT
  Age: 64 Year
  Sex: Female

DRUGS (4)
  1. ACLASTA [Suspect]
     Indication: OSTEOPOROSIS PROPHYLAXIS
     Dosage: 5 MG, UNK
     Route: 042
     Dates: start: 20100622
  2. MABTHERA [Suspect]
     Dosage: 1 G, UNK
     Route: 042
     Dates: start: 20100701
  3. MABTHERA [Suspect]
     Dosage: 1 G, UNK
     Route: 042
     Dates: start: 20100716, end: 20100716
  4. CORTANCYL [Suspect]
     Dosage: 1 MG/KG, UNK
     Route: 048
     Dates: start: 2009

REACTIONS (1)
  - Interstitial lung disease [Not Recovered/Not Resolved]
